FAERS Safety Report 9119671 (Version 1)
Quarter: 2013Q1

REPORT INFORMATION
  Report Type: Spontaneous
  Country: NZ (occurrence: NZ)
  Receive Date: 20130226
  Receipt Date: 20130226
  Transmission Date: 20140127
  Serious: Yes (Life-Threatening, Hospitalization)
  Sender: FDA-Public Use
  Company Number: NZ-GE HEALTHCARE MEDICAL DIAGNOSTICS-OMPQ-NO-1302S-0227

PATIENT
  Age: 77 Year
  Sex: Female

DRUGS (4)
  1. OMNIPAQUE [Suspect]
     Indication: SKIN ULCER
     Route: 042
     Dates: start: 20130219, end: 20130219
  2. OMNIPAQUE [Suspect]
     Indication: MYOCARDIAL ISCHAEMIA
  3. OMNIPAQUE [Suspect]
     Indication: TOBACCO USER
  4. OMNIPAQUE [Suspect]
     Indication: DIAGNOSTIC PROCEDURE

REACTIONS (5)
  - Oxygen saturation decreased [Recovered/Resolved]
  - Dyspnoea [Recovered/Resolved]
  - Obstructive airways disorder [Recovered/Resolved]
  - Heart rate increased [Recovered/Resolved]
  - Blood pressure increased [Recovered/Resolved]
